FAERS Safety Report 6759695-X (Version None)
Quarter: 2010Q2

REPORT INFORMATION
  Report Type: 
  Country: None (occurrence: None)
  Receive Date: 20100608
  Receipt Date: 20100524
  Transmission Date: 20101027
  Serious: Yes (Death)
  Sender: FDA-Public Use
  Company Number: TR-TEVA-235837ISR

PATIENT
  Age: 63 Year
  Sex: Female

DRUGS (5)
  1. VINCRISTINE [Suspect]
  2. DOXORUBICIN HCL [Suspect]
  3. CYCLOPHOSPHAMIDE [Suspect]
  4. PREDNISOLONE [Suspect]
  5. RITUXIMAB [Suspect]

REACTIONS (1)
  - MUCORMYCOSIS [None]
